FAERS Safety Report 10390933 (Version 2)
Quarter: 2014Q3

REPORT INFORMATION
  Report Type: Spontaneous
  Country: US (occurrence: US)
  Receive Date: 20140818
  Receipt Date: 20140818
  Transmission Date: 20150326
  Serious: Yes (Other)
  Sender: FDA-Public Use
  Company Number: US-BRISTOL-MYERS SQUIBB COMPANY-21288527

PATIENT
  Age: 79 Year
  Sex: Female
  Weight: 71.65 kg

DRUGS (4)
  1. VITAMIN B [Concomitant]
     Active Substance: VITAMIN B
  2. ONGLYZA [Suspect]
     Active Substance: SAXAGLIPTIN HYDROCHLORIDE
     Indication: DIABETES MELLITUS
     Route: 048
     Dates: start: 201202
  3. SYNTHROID [Concomitant]
     Active Substance: LEVOTHYROXINE SODIUM
  4. METFORMIN HCL [Concomitant]
     Active Substance: METFORMIN HYDROCHLORIDE
     Indication: DIABETES MELLITUS

REACTIONS (4)
  - Carpal tunnel syndrome [Unknown]
  - Lymphoma [Unknown]
  - Low density lipoprotein increased [Unknown]
  - Pain of skin [Unknown]

NARRATIVE: CASE EVENT DATE: 201406
